FAERS Safety Report 5897230-9 (Version None)
Quarter: 2008Q3

REPORT INFORMATION
  Report Type: 
  Country: None (occurrence: None)
  Receive Date: 20080923
  Receipt Date: 20080911
  Transmission Date: 20090109
  Serious: Yes (Death, Hospitalization, Other)
  Sender: FDA-Public Use
  Company Number: 52380

PATIENT
  Age: 17 Month
  Sex: Male

DRUGS (1)
  1. CARBOPLATIN [Suspect]
     Indication: HEPATOBLASTOMA
     Dosage: 158MG/M2

REACTIONS (2)
  - ACUTE MYELOID LEUKAEMIA [None]
  - STEM CELL TRANSPLANT [None]
